FAERS Safety Report 7932435-4 (Version None)
Quarter: 2011Q4

REPORT INFORMATION
  Report Type: 
  Country: None (occurrence: None)
  Receive Date: 20111122
  Receipt Date: 20111110
  Transmission Date: 20120403
  Serious: Yes (Hospitalization)
  Sender: FDA-Public Use
  Company Number: US-BIOGENIDEC-2011BI042985

PATIENT
  Age: 54 Year
  Sex: Female

DRUGS (4)
  1. AVONEX [Suspect]
     Indication: MULTIPLE SCLEROSIS
     Route: 030
     Dates: start: 20100401, end: 20111001
  2. PERCOCET [Concomitant]
  3. AMPYRA [Concomitant]
     Indication: GAIT DISTURBANCE
     Dates: start: 20100401, end: 20111001
  4. AVONEX [Suspect]
     Route: 030

REACTIONS (3)
  - OVERDOSE [None]
  - GAIT DISTURBANCE [None]
  - LIVER INJURY [None]
